FAERS Safety Report 11233708 (Version 1)
Quarter: 2015Q3

REPORT INFORMATION
  Report Type: Spontaneous
  Country: CA (occurrence: CA)
  Receive Date: 20150702
  Receipt Date: 20150702
  Transmission Date: 20151125
  Serious: Yes (Other)
  Sender: FDA-Public Use
  Company Number: CA-TEVA-574863ACC

PATIENT
  Age: 47 Year
  Sex: Female
  Weight: 71.28 kg

DRUGS (5)
  1. RANITIDINE [Suspect]
     Active Substance: RANITIDINE\RANITIDINE HYDROCHLORIDE
     Indication: PROPHYLAXIS
     Dosage: 300 MILLIGRAM DAILY;
     Route: 048
  2. CENTRUM FORTE [Concomitant]
     Route: 065
  3. VITAMIN D [Concomitant]
     Active Substance: CHOLECALCIFEROL
     Route: 065
  4. CLINDAMYCIN [Suspect]
     Active Substance: CLINDAMYCIN\CLINDAMYCIN PHOSPHATE
     Indication: PROPHYLAXIS
     Dosage: 450 MG ONCE
     Route: 042
  5. PURG-ODAN [Concomitant]
     Route: 048

REACTIONS (2)
  - Haemorrhoids [Not Recovered/Not Resolved]
  - Clostridium difficile infection [Not Recovered/Not Resolved]
